FAERS Safety Report 6795738-5 (Version None)
Quarter: 2010Q2

REPORT INFORMATION
  Report Type: 
  Country: None (occurrence: None)
  Receive Date: 20100625
  Receipt Date: 20100617
  Transmission Date: 20101027
  Serious: Yes (Other)
  Sender: FDA-Public Use
  Company Number: US-ALEXION-A201000650

PATIENT
  Sex: Female

DRUGS (6)
  1. SOLIRIS [Suspect]
     Indication: PAROXYSMAL NOCTURNAL HAEMOGLOBINURIA
     Dosage: 600 MG, UNK
     Route: 042
     Dates: start: 20100514, end: 20100603
  2. SOLIRIS [Suspect]
     Dosage: 900 MG, UNK
     Route: 042
     Dates: start: 20100610
  3. CYCLOSPORINE [Concomitant]
     Dosage: UNK
     Dates: end: 20100501
  4. DIPHENHYDRAMINE [Concomitant]
     Dosage: 25 MG, UNK
     Dates: start: 20100527
  5. MORPHINE SULFATE [Concomitant]
     Indication: ABDOMINAL PAIN
     Dosage: UNK
     Route: 048
  6. MIRALAX [Concomitant]
     Indication: CONSTIPATION
     Dosage: UNK
     Route: 048

REACTIONS (3)
  - MUSCULOSKELETAL PAIN [None]
  - OOCYTE HARVEST [None]
  - PYREXIA [None]
